FAERS Safety Report 11044541 (Version 1)
Quarter: 2015Q2

REPORT INFORMATION
  Report Type: Spontaneous
  Country: US (occurrence: US)
  Receive Date: 20150417
  Receipt Date: 20150417
  Transmission Date: 20150821
  Serious: No
  Sender: FDA-Public Use
  Company Number: US-ELI_LILLY_AND_COMPANY-US201504002592

PATIENT
  Sex: Female

DRUGS (2)
  1. FORTEO [Suspect]
     Active Substance: TERIPARATIDE
     Indication: OSTEOPOROSIS POSTMENOPAUSAL
     Dosage: 20 UG, QD
     Route: 065
     Dates: start: 201402, end: 201502
  2. CALCIUM [Suspect]
     Active Substance: CALCIUM
     Indication: PRODUCT USED FOR UNKNOWN INDICATION
     Dosage: UNK, UNKNOWN
     Route: 065
     Dates: end: 201502

REACTIONS (2)
  - Blood calcium increased [Recovered/Resolved]
  - Blood parathyroid hormone increased [Unknown]
